FAERS Safety Report 16961772 (Version 1)
Quarter: 2019Q4

REPORT INFORMATION
  Report Type: Spontaneous
  Country: US (occurrence: US)
  Receive Date: 20191025
  Receipt Date: 20191025
  Transmission Date: 20200122
  Serious: Yes (Other)
  Sender: FDA-Public Use
  Company Number: US-ASTRAZENECA-2019SF49581

PATIENT
  Sex: Female
  Weight: 56.7 kg

DRUGS (1)
  1. SYMBICORT [Suspect]
     Active Substance: BUDESONIDE\FORMOTEROL FUMARATE DIHYDRATE
     Indication: CHRONIC OBSTRUCTIVE PULMONARY DISEASE
     Dosage: 160/4.5 MCG 2 PUFFS DAILY
     Route: 055

REACTIONS (10)
  - Wrong technique in device usage process [Unknown]
  - Myocardial infarction [Unknown]
  - Anxiety [Unknown]
  - Product prescribing error [Unknown]
  - Chest discomfort [Unknown]
  - Device issue [Unknown]
  - Chronic obstructive pulmonary disease [Unknown]
  - Lung disorder [Unknown]
  - Limb discomfort [Unknown]
  - Cardiac disorder [Unknown]
